FAERS Safety Report 9435668 (Version 2)
Quarter: 2013Q3

REPORT INFORMATION
  Report Type: Report from Study
  Country: CN (occurrence: CN)
  Receive Date: 20130801
  Receipt Date: 20130814
  Transmission Date: 20140515
  Serious: Yes (Death, Hospitalization)
  Sender: FDA-Public Use
  Company Number: CN-US-EMD SERONO, INC.-7227035

PATIENT
  Age: 1 Year
  Sex: Female

DRUGS (2)
  1. SAIZEN [Suspect]
     Indication: HYPOPITUITARISM
  2. EUTHYROX [Concomitant]
     Indication: HYPOPITUITARISM

REACTIONS (10)
  - Disease progression [Fatal]
  - Secondary adrenocortical insufficiency [Fatal]
  - Adrenocortical insufficiency acute [Fatal]
  - Status epilepticus [Fatal]
  - Thyroid function test abnormal [Fatal]
  - Sepsis [Fatal]
  - Respiratory failure [Fatal]
  - Bronchopneumonia [Fatal]
  - Hypoglycaemia [Fatal]
  - Growth hormone deficiency [Fatal]
